FAERS Safety Report 5017945-4 (Version None)
Quarter: 2006Q2

REPORT INFORMATION
  Report Type: 
  Country: None (occurrence: None)
  Receive Date: 20060605
  Receipt Date: 20020618
  Transmission Date: 20061013
  Serious: Yes (Hospitalization)
  Sender: FDA-Public Use
  Company Number: FR-GLAXOSMITHKLINE-B0271914A

PATIENT
  Age: 25 Year
  Sex: Female

DRUGS (6)
  1. LAMICTAL [Suspect]
     Indication: EPILEPSY
     Dosage: 1UD PER DAY
     Route: 048
     Dates: start: 20020227, end: 20020318
  2. CIRKAN [Concomitant]
     Dates: start: 20020201, end: 20020318
  3. MEDIATOR [Concomitant]
     Dates: start: 20020101, end: 20020318
  4. NORDETTE-21 [Concomitant]
     Indication: CONTRACEPTION
     Dates: end: 20020318
  5. DEPAKENE [Concomitant]
     Indication: EPILEPSY
     Dates: start: 20010101
  6. HERBAL MEDICATION [Concomitant]
     Route: 065
     Dates: start: 20020201, end: 20020318

REACTIONS (9)
  - CONJUNCTIVITIS [None]
  - DEPRESSION [None]
  - DRY EYE [None]
  - DYSURIA [None]
  - KERATITIS [None]
  - PHOTOPHOBIA [None]
  - RASH [None]
  - STEVENS-JOHNSON SYNDROME [None]
  - TRICHIASIS [None]
